FAERS Safety Report 5374846-X (Version None)
Quarter: 2007Q2

REPORT INFORMATION
  Report Type: 
  Country: None (occurrence: None)
  Receive Date: 20070629
  Receipt Date: 20070625
  Transmission Date: 20071010
  Serious: Yes (Hospitalization, Other)
  Sender: FDA-Public Use
  Company Number: B0474275A

PATIENT
  Age: 72 Year
  Sex: Male

DRUGS (11)
  1. AVANDAMET [Suspect]
     Dosage: 1TAB THREE TIMES PER DAY
     Route: 048
     Dates: start: 20060801, end: 20061031
  2. ANGIOTENSIN-CONVERTING ENZYME INHIBITOR [Concomitant]
     Route: 065
  3. NOVONORM [Concomitant]
     Route: 065
  4. BETA BLOCKER [Concomitant]
     Route: 065
  5. FUROSEMIDE [Concomitant]
     Route: 065
  6. ZOCOR [Concomitant]
     Route: 065
  7. ASPIRIN [Concomitant]
     Route: 065
  8. TENORMIN [Concomitant]
     Route: 065
  9. ZESTRIL [Concomitant]
     Route: 065
  10. LASIX [Concomitant]
     Route: 065
  11. LOXEN [Concomitant]
     Route: 065

REACTIONS (2)
  - OEDEMA PERIPHERAL [None]
  - PULMONARY OEDEMA [None]
